FAERS Safety Report 20467680 (Version 2)
Quarter: 2022Q1

REPORT INFORMATION
  Report Type: Spontaneous
  Country: FR (occurrence: FR)
  Receive Date: 20220214
  Receipt Date: 20220318
  Transmission Date: 20220423
  Serious: Yes (Hospitalization)
  Sender: FDA-Public Use
  Company Number: None

PATIENT
  Age: 70 Year
  Sex: Female
  Weight: 78 kg

DRUGS (11)
  1. EPIRUBICIN [Suspect]
     Active Substance: EPIRUBICIN
     Indication: Breast cancer
     Dosage: 170 MG
     Route: 042
     Dates: start: 20211220, end: 20211220
  2. QUETIAPINE FUMARATE [Suspect]
     Active Substance: QUETIAPINE FUMARATE
     Indication: Mental disorder
     Dosage: XEROQUEL LP 300 MG, EXTENDED RELEASE TABLET, 300 MG
     Route: 048
     Dates: end: 20211227
  3. CYCLOPHOSPHAMIDE [Concomitant]
     Active Substance: CYCLOPHOSPHAMIDE
     Indication: Breast cancer
     Dosage: 900 MG
     Route: 042
     Dates: start: 20211220, end: 20211220
  4. OXAZEPAM [Concomitant]
     Active Substance: OXAZEPAM
     Dosage: SERESTA 10 MG, TABLET,  DOSE:30 MG,THERAPY START DATE :ASKU
     Route: 048
  5. ONDANSETRON [Concomitant]
     Active Substance: ONDANSETRON
     Dosage: ZOPHREN 8 MG, 8 MG
     Route: 048
     Dates: start: 20211220, end: 20211220
  6. TRIHEXYPHENIDYL HYDROCHLORIDE [Concomitant]
     Active Substance: TRIHEXYPHENIDYL HYDROCHLORIDE
     Dosage: PARKINANE L P 5 MG, PROLONGED-RELEASE CAPSULE, THERAPY START DATE :ASKU, 10 MG
     Route: 048
     Dates: end: 20211227
  7. EMEND [Concomitant]
     Active Substance: APREPITANT
     Dosage: EMEND 80 MG, CAPSULES, 80 MG
     Route: 048
     Dates: start: 20211220, end: 20211222
  8. HYDROCHLOROTHIAZIDE\IRBESARTAN [Concomitant]
     Active Substance: HYDROCHLOROTHIAZIDE\IRBESARTAN
     Dosage: COAPROVEL 300 MG/12,5 MG, TABLET,THERAPY START DATE :ASKU
     Route: 048
     Dates: end: 20211227
  9. SOLU-MEDROL [Concomitant]
     Active Substance: METHYLPREDNISOLONE SODIUM SUCCINATE
     Dosage: 60 MG
     Route: 042
     Dates: start: 20211220, end: 20211220
  10. DEPAKOTE [Concomitant]
     Active Substance: DIVALPROEX SODIUM
     Dosage: THERAPY START DATE :ASKU, 750 MG
     Route: 048
  11. LEVOTHYROXINE [Concomitant]
     Active Substance: LEVOTHYROXINE
     Dosage: LEVOTHYROX 75 MICROGRAMMES, SCORED TABLET,THERAPY START DATE :ASKU,1 DF
     Route: 048

REACTIONS (1)
  - Generalised tonic-clonic seizure [Recovered/Resolved]

NARRATIVE: CASE EVENT DATE: 20211227
